FAERS Safety Report 8538452-8 (Version None)
Quarter: 2012Q3

REPORT INFORMATION
  Report Type: 
  Country: None (occurrence: None)
  Receive Date: 20120712
  Receipt Date: 20120628
  Transmission Date: 20120928
  Serious: Yes (Other)
  Sender: FDA-Public Use
  Company Number: EU-2012-10185

PATIENT
  Age: 68 Year
  Sex: Male

DRUGS (4)
  1. PLETAL [Suspect]
     Indication: PERIPHERAL ISCHAEMIA
     Dosage: 1 DF DOSAGE FORM,ORAL
     Route: 048
     Dates: start: 20120322, end: 20120426
  2. ASPIRIN [Suspect]
     Indication: MYOCARDIAL ISCHAEMIA
     Dosage: 100 MG MILLIGRAM(S), DAILY DOSE,ORAL
     Route: 048
  3. BISOPROLOL NORMON 10 MG COMPRIMIDOS RECUBIERTOS EFG, 20 COMPRIMIDOS (B [Concomitant]
  4. RAMIPRIL ACOST 2.5 MG COMPRIMIDOS, 29 COMPRIMIDOS (RAMIPRIL) [Concomitant]

REACTIONS (2)
  - DRUG INTERACTION [None]
  - EAR HAEMORRHAGE [None]
